FAERS Safety Report 13928914 (Version 2)
Quarter: 2017Q3

REPORT INFORMATION
  Report Type: Spontaneous
  Country: JP (occurrence: JP)
  Receive Date: 20170901
  Receipt Date: 20170919
  Transmission Date: 20171127
  Serious: No
  Sender: FDA-Public Use
  Company Number: JP-ROCHE-1987908

PATIENT
  Sex: Female

DRUGS (4)
  1. BONVIVA [Suspect]
     Active Substance: IBANDRONATE SODIUM
     Indication: OSTEOPOROSIS
     Route: 048
     Dates: start: 20170728, end: 20170728
  2. EDIROL [Concomitant]
     Active Substance: ELDECALCITOL
     Route: 048
     Dates: start: 20170203
  3. JUVELA N [Concomitant]
     Active Substance: TOCOPHERYL NICOTINATE, D-.ALPHA.
     Route: 048
     Dates: start: 20170203
  4. TSUMURA SHAKUYAKUKANZOTO [Concomitant]
     Active Substance: HERBALS
     Route: 048
     Dates: start: 20170203

REACTIONS (2)
  - Muscular weakness [Recovered/Resolved]
  - Rash [Recovered/Resolved]
